FAERS Safety Report 16124906 (Version 1)
Quarter: 2019Q1

REPORT INFORMATION
  Report Type: Other
  Country: US (occurrence: US)
  Receive Date: 20190327
  Receipt Date: 20190327
  Transmission Date: 20190418
  Serious: Yes (Hospitalization)
  Sender: FDA-Public Use
  Company Number: US-B. BRAUN MEDICAL INC.-2064788

PATIENT
  Age: 61 Year
  Sex: Male

DRUGS (8)
  1. SPIRONOLACTONE. [Concomitant]
     Active Substance: SPIRONOLACTONE
  2. FUROSEMIDE. [Concomitant]
     Active Substance: FUROSEMIDE
  3. SOFOSBUVIR [Concomitant]
     Active Substance: SOFOSBUVIR
  4. LACTULOSE. [Concomitant]
     Active Substance: LACTULOSE
  5. PROPRANOLOL [Concomitant]
     Active Substance: PROPRANOLOL HYDROCHLORIDE
  6. RIBAVIRIN. [Concomitant]
     Active Substance: RIBAVIRIN
  7. CEFTRIAXONE FOR INJECTION AND DEXTROSE INJECTION 0264-3153-11 (NDA 050 [Suspect]
     Active Substance: CEFTRIAXONE SODIUM
  8. LEDIPASVIR [Concomitant]
     Active Substance: LEDIPASVIR

REACTIONS (1)
  - Hypersensitivity vasculitis [None]
